FAERS Safety Report 14056701 (Version 1)
Quarter: 2017Q4

REPORT INFORMATION
  Report Type: Spontaneous
  Country: JP (occurrence: JP)
  Receive Date: 20171006
  Receipt Date: 20171006
  Transmission Date: 20180321
  Serious: Yes (Death, Other)
  Sender: FDA-Public Use
  Company Number: JP-BAYER-2017-089565

PATIENT
  Age: 79 Year
  Sex: Male
  Weight: 54 kg

DRUGS (7)
  1. LASIX [Concomitant]
     Active Substance: FUROSEMIDE
     Indication: ASCITES
     Dosage: DAILY DOSE 20 MG
     Route: 048
     Dates: start: 20151006, end: 20170525
  2. NEXAVAR [Suspect]
     Active Substance: SORAFENIB
     Indication: HEPATOCELLULAR CARCINOMA
     Dosage: 400 MG, QD
     Route: 048
     Dates: start: 20151006, end: 20170421
  3. NEXAVAR [Suspect]
     Active Substance: SORAFENIB
     Indication: HEPATOCELLULAR CARCINOMA
     Dosage: DAILY DOSE 200 MG
     Route: 048
     Dates: start: 20170518, end: 20170525
  4. NEXIUM [Concomitant]
     Active Substance: ESOMEPRAZOLE MAGNESIUM
     Indication: OESOPHAGITIS
     Dosage: DAILY DOSE 20 MG
     Route: 048
     Dates: start: 20151006, end: 20170525
  5. LIVACT [Concomitant]
     Active Substance: AMINO ACIDS
     Indication: HEPATIC CIRRHOSIS
     Dosage: DAILY DOSE 12.45 G
     Route: 048
  6. URSO [Concomitant]
     Active Substance: URSODIOL
     Dosage: DAILY DOSE 600 MG
     Route: 048
     Dates: start: 20151006, end: 20170525
  7. ALDACTONE A [Concomitant]
     Active Substance: SPIRONOLACTONE
     Indication: ASCITES
     Dosage: DAILY DOSE 25 MG
     Route: 048
     Dates: start: 20151006, end: 20170525

REACTIONS (5)
  - Hepatic encephalopathy [Recovering/Resolving]
  - Gastrointestinal haemorrhage [None]
  - Pulmonary oedema [Fatal]
  - Hepatocellular carcinoma [Fatal]
  - Renal impairment [Recovering/Resolving]

NARRATIVE: CASE EVENT DATE: 20170324
